FAERS Safety Report 5590328-4 (Version None)
Quarter: 2007Q4

REPORT INFORMATION
  Report Type: 
  Country: None (occurrence: None)
  Receive Date: 20071212
  Receipt Date: 20070928
  Transmission Date: 20080405
  Serious: Yes (Other)
  Sender: FDA-Public Use
  Company Number: USA-2007-0029410

PATIENT
  Age: 72 Year
  Sex: Female

DRUGS (3)
  1. OXYCONTIN [Suspect]
     Indication: PAIN
     Dosage: 10 MG, Q12H
  2. PERCOCET [Concomitant]
  3. LYRICA [Concomitant]

REACTIONS (1)
  - HALLUCINATION [None]
